FAERS Safety Report 18184837 (Version 1)
Quarter: 2020Q3

REPORT INFORMATION
  Report Type: Spontaneous
  Country: IT (occurrence: IT)
  Receive Date: 20200824
  Receipt Date: 20200824
  Transmission Date: 20201103
  Serious: Yes (Other)
  Sender: FDA-Public Use
  Company Number: IT-LUPIN PHARMACEUTICALS INC.-2020-04881

PATIENT
  Age: 74 Year
  Sex: Male

DRUGS (6)
  1. TOCILIZUMAB. [Concomitant]
     Active Substance: TOCILIZUMAB
     Dosage: 5 MILLIGRAM, BID (5 MG WAS ADMINISTERED 2 TABLETS PER DAY FOR 2 DAYS)
  2. HYDROXYCHLOROQUINE [Suspect]
     Active Substance: HYDROXYCHLOROQUINE
     Indication: COVID-19
     Dosage: 400 MILLIGRAM, QD
     Route: 065
  3. ENOXAPARIN [Concomitant]
     Active Substance: ENOXAPARIN
     Indication: COVID-19
     Dosage: 6000 UNIT
     Route: 065
  4. LOPINAVIR/RITONAVIR [Concomitant]
     Active Substance: LOPINAVIR\RITONAVIR
     Indication: COVID-19
     Dosage: 2 DOSAGE FORM, BID (LOPINAVIR 200 MG/RITONAVIR 50 MG TWO TABLETS TWO TIMES PER DAY)
     Route: 065
  5. DEXAMETHASONE. [Concomitant]
     Active Substance: DEXAMETHASONE
     Indication: COVID-19
     Dosage: 20 MILLIGRAM
     Route: 065
  6. TOCILIZUMAB. [Concomitant]
     Active Substance: TOCILIZUMAB
     Indication: COVID-19
     Dosage: 162 MILLIGRAM (2 CYCLES A WEEK INJECTION)
     Route: 058

REACTIONS (1)
  - Off label use [Unknown]
